FAERS Safety Report 11812350 (Version 2)
Quarter: 2015Q4

REPORT INFORMATION
  Report Type: Report from Study
  Country: NL (occurrence: NL)
  Receive Date: 20151208
  Receipt Date: 20151215
  Transmission Date: 20160305
  Serious: Yes (Hospitalization)
  Sender: FDA-Public Use
  Company Number: NL-ROCHE-1671781

PATIENT
  Age: 50 Year
  Sex: Female

DRUGS (10)
  1. PERTUZUMAB [Suspect]
     Active Substance: PERTUZUMAB
     Dosage: MAINTENANCE DOSE, MOST RECENT DOSE ON 24/NOV/2015
     Route: 042
  2. FLUOROURACIL. [Suspect]
     Active Substance: FLUOROURACIL
     Indication: HER-2 POSITIVE BREAST CANCER
     Dosage: DAY 1, MOST RECENT DOSE ON 02/NOV/2015
     Route: 042
     Dates: start: 20150921
  3. PERTUZUMAB [Suspect]
     Active Substance: PERTUZUMAB
     Indication: HER-2 POSITIVE BREAST CANCER
     Dosage: LOADING DOSE, DAY 1
     Route: 042
     Dates: start: 20150921
  4. PACLITAXEL. [Suspect]
     Active Substance: PACLITAXEL
     Indication: HER-2 POSITIVE BREAST CANCER
     Dosage: DAY 1, MOST RECENT DOSE ON 30/NOV/2015 (DAY 8)
     Route: 042
     Dates: start: 20151124
  5. METOCLOPRAMIDE. [Concomitant]
     Active Substance: METOCLOPRAMIDE
     Route: 065
     Dates: start: 20151130
  6. TRASTUZUMAB [Suspect]
     Active Substance: TRASTUZUMAB
     Dosage: MAINTENANCE DOSE, MOST RECENT DOSE ON 24/NOV/2015
     Route: 042
  7. EPIRUBICINE [Suspect]
     Active Substance: EPIRUBICIN
     Indication: HER-2 POSITIVE BREAST CANCER
     Dosage: DAY 1, MOST RECENT DOSE ON 02/NOV/2015
     Route: 042
     Dates: start: 20150921
  8. CYCLOPHOSPHAMIDE. [Suspect]
     Active Substance: CYCLOPHOSPHAMIDE
     Indication: HER-2 POSITIVE BREAST CANCER
     Dosage: DAY 1, MOST RECENT DOSE ON 02/NOV/2015
     Route: 042
     Dates: start: 20150921
  9. CARBOPLATIN. [Suspect]
     Active Substance: CARBOPLATIN
     Indication: HER-2 POSITIVE BREAST CANCER
     Dosage: CARBOPLATIN; AUC=6; DAY 1,MOST RECENT DOSE ON 30/NOV/2015
     Route: 042
     Dates: start: 20151124
  10. TRASTUZUMAB [Suspect]
     Active Substance: TRASTUZUMAB
     Indication: HER-2 POSITIVE BREAST CANCER
     Dosage: LOADING DOSE, DAY 1
     Route: 042
     Dates: start: 20150921

REACTIONS (2)
  - Nephropathy toxic [Unknown]
  - Diarrhoea [Unknown]

NARRATIVE: CASE EVENT DATE: 20151130
